FAERS Safety Report 4576330-X (Version None)
Quarter: 2005Q1

REPORT INFORMATION
  Report Type: 
  Country: None (occurrence: None)
  Receive Date: 20050207
  Receipt Date: 20050125
  Transmission Date: 20050727
  Serious: Yes (Hospitalization)
  Sender: FDA-Public Use
  Company Number: 2005019226

PATIENT
  Age: 58 Year
  Sex: Male

DRUGS (8)
  1. SORTIS     (ATORVASTATIN) [Suspect]
     Indication: HYPERLIPIDAEMIA
     Dosage: 40 MG (40 MG, 1 IN 1 D), ORAL
     Route: 048
     Dates: end: 20041220
  2. AMIODARONE HCL [Suspect]
     Indication: ATRIAL FIBRILLATION
     Dates: start: 20041210, end: 20041221
  3. AMIODARONE HCL [Suspect]
     Indication: ATRIAL FLUTTER
     Dates: start: 20041210, end: 20041221
  4. PROPOFOL [Suspect]
     Indication: ILL-DEFINED DISORDER
     Dosage: INTRAVENOUS
     Route: 042
     Dates: start: 20041206, end: 20041217
  5. FENTANYL [Concomitant]
  6. CEFTRIAXONE [Concomitant]
  7. HYDROCORTISONE SODIUM SUCCINATE [Concomitant]
  8. FLOXACILLIN SODIUM [Concomitant]

REACTIONS (6)
  - ACUTE RESPIRATORY DISTRESS SYNDROME [None]
  - ATRIAL FIBRILLATION [None]
  - ATRIAL FLUTTER [None]
  - HAEMODIALYSIS [None]
  - RENAL FAILURE ACUTE [None]
  - RHABDOMYOLYSIS [None]
